FAERS Safety Report 4400713-1 (Version None)
Quarter: 2004Q3

REPORT INFORMATION
  Report Type: 
  Country: None (occurrence: None)
  Receive Date: 20040714
  Receipt Date: 20040630
  Transmission Date: 20050211
  Serious: Yes (Hospitalization)
  Sender: FDA-Public Use
  Company Number: 2004-BP-02306NB(2)

PATIENT
  Age: 73 Year
  Sex: Female

DRUGS (5)
  1. MEXITIL [Suspect]
     Indication: VENTRICULAR EXTRASYSTOLES
     Dosage: 300 MG  PO
     Route: 048
     Dates: start: 20031127, end: 20031202
  2. LASIX [Concomitant]
  3. ALDACTONE [Concomitant]
  4. ASPIRIN [Concomitant]
  5. ANPLAG(SARPOGRELATE HYDROCHLORIDE) [Concomitant]

REACTIONS (2)
  - HAEMOLYTIC ANAEMIA [None]
  - JAUNDICE ACHOLURIC [None]
